FAERS Safety Report 26169669 (Version 1)
Quarter: 2025Q4

REPORT INFORMATION
  Report Type: Spontaneous
  Country: US (occurrence: None)
  Receive Date: 20251216
  Receipt Date: 20251216
  Transmission Date: 20260117
  Serious: Yes (Hospitalization)
  Sender: FDA-CTU
  Company Number: None

PATIENT
  Age: 80 Year
  Sex: Male

DRUGS (1)
  1. COLLAGENASE SANTYL [Suspect]
     Active Substance: COLLAGENASE CLOSTRIDIUM HISTOLYTICUM
     Indication: Wound
     Dosage: FREQUENCY : DAILY;
     Route: 061
     Dates: start: 20251115

REACTIONS (3)
  - Wound [None]
  - Infection [None]
  - Confusional state [None]

NARRATIVE: CASE EVENT DATE: 20251125
